FAERS Safety Report 24861525 (Version 2)
Quarter: 2025Q1

REPORT INFORMATION
  Report Type: Report from Study
  Country: GB (occurrence: GB)
  Receive Date: 20250120
  Receipt Date: 20250219
  Transmission Date: 20250409
  Serious: Yes (Other)
  Sender: ROCHE
  Company Number: GB-ROCHE-3427865

PATIENT
  Sex: Female

DRUGS (5)
  1. TOCILIZUMAB [Suspect]
     Active Substance: TOCILIZUMAB
     Indication: Rheumatoid arthritis
     Route: 058
     Dates: start: 20190405
  2. PREDNISOLONE [Concomitant]
     Active Substance: PREDNISOLONE
  3. METHOTREXATE [Concomitant]
     Active Substance: METHOTREXATE
  4. TRAMADOL [Concomitant]
     Active Substance: TRAMADOL
  5. SULFASALAZINE [Concomitant]
     Active Substance: SULFASALAZINE

REACTIONS (8)
  - Skin ulcer [Unknown]
  - Contusion [Unknown]
  - Immunosuppression [Unknown]
  - Fatigue [Unknown]
  - Skin laceration [Unknown]
  - Somnolence [Unknown]
  - Haematological malignancy [Unknown]
  - Bladder neoplasm [Unknown]
